FAERS Safety Report 5789231-6 (Version None)
Quarter: 2008Q2

REPORT INFORMATION
  Report Type: 
  Country: None (occurrence: None)
  Receive Date: 20080626
  Receipt Date: 20080214
  Transmission Date: 20081010
  Serious: No
  Sender: FDA-Public Use
  Company Number: US-ASTRAZENECA-2008UW03118

PATIENT
  Age: 81 Year
  Sex: Female
  Weight: 54.4 kg

DRUGS (6)
  1. PULMICORT FLEXHALER [Suspect]
     Indication: ASTHMA
     Route: 055
     Dates: start: 20080101
  2. PULMICORT FLEXHALER [Suspect]
     Route: 055
     Dates: start: 20080101
  3. SYNTHROID [Concomitant]
  4. PROVENTIL GENTLEHALER [Concomitant]
  5. VERELAN [Concomitant]
  6. VITAMINS [Concomitant]

REACTIONS (1)
  - DYSPNOEA [None]
